FAERS Safety Report 8179077-6 (Version None)
Quarter: 2012Q1

REPORT INFORMATION
  Report Type: 
  Country: None (occurrence: None)
  Receive Date: 20120302
  Receipt Date: 20120220
  Transmission Date: 20120608
  Serious: Yes (Other)
  Sender: FDA-Public Use
  Company Number: JP-RANBAXY-2012RR-52993

PATIENT
  Age: 15 Year
  Sex: Female

DRUGS (2)
  1. SITAFLOXACIN [Suspect]
     Indication: OSTEITIS
     Dosage: 50 MG, BID
     Route: 065
  2. CLARITHROMYCIN [Suspect]
     Indication: PRODUCT USED FOR UNKNOWN INDICATION
     Dosage: UNK
     Route: 065

REACTIONS (1)
  - DRUG ERUPTION [None]
